FAERS Safety Report 25964370 (Version 2)
Quarter: 2025Q4

REPORT INFORMATION
  Report Type: Report from Study
  Country: EG (occurrence: EG)
  Receive Date: 20251027
  Receipt Date: 20251110
  Transmission Date: 20260117
  Serious: Yes (Hospitalization, Other)
  Sender: ROCHE
  Company Number: EG-ROCHE-10000414640

PATIENT
  Age: 68 Year
  Sex: Male
  Weight: 95 kg

DRUGS (3)
  1. TECENTRIQ [Suspect]
     Active Substance: ATEZOLIZUMAB
     Indication: Hepatic cancer metastatic
     Route: 042
     Dates: start: 20250225
  2. NOVORAPID [Concomitant]
     Active Substance: INSULIN ASPART
     Indication: Diabetes mellitus
  3. AVASTIN [Concomitant]
     Active Substance: BEVACIZUMAB
     Indication: Hepatic cancer metastatic
     Route: 042
     Dates: start: 20250225

REACTIONS (7)
  - Varices oesophageal [Recovered/Resolved]
  - Coagulopathy [Not Recovered/Not Resolved]
  - Immunodeficiency [Not Recovered/Not Resolved]
  - Thrombocytopenia [Not Recovered/Not Resolved]
  - Bleeding varicose vein [Recovered/Resolved]
  - Haematemesis [Unknown]
  - Off label use [Unknown]

NARRATIVE: CASE EVENT DATE: 20250921
